FAERS Safety Report 11703933 (Version 1)
Quarter: 2015Q4

REPORT INFORMATION
  Report Type: Spontaneous
  Country: US (occurrence: US)
  Receive Date: 20151106
  Receipt Date: 20151106
  Transmission Date: 20160304
  Serious: No
  Sender: FDA-Public Use
  Company Number: US-009507513-1511USA001131

PATIENT

DRUGS (2)
  1. TEMODAR [Suspect]
     Active Substance: TEMOZOLOMIDE
     Indication: HEAD AND NECK CANCER
  2. TEMODAR [Suspect]
     Active Substance: TEMOZOLOMIDE
     Indication: SQUAMOUS CELL CARCINOMA OF SKIN

REACTIONS (1)
  - Drug ineffective for unapproved indication [Unknown]
